FAERS Safety Report 10147025 (Version 1)
Quarter: 2014Q2

REPORT INFORMATION
  Report Type: Spontaneous
  Country: US (occurrence: None)
  Receive Date: 20140430
  Receipt Date: 20140430
  Transmission Date: 20141212
  Serious: Yes (Hospitalization)
  Sender: FDA-Public Use
  Company Number: None

PATIENT
  Age: 83 Year
  Sex: Male

DRUGS (16)
  1. EPINEPHRINE [Suspect]
     Indication: ANAPHYLACTIC REACTION
     Route: 042
     Dates: start: 20130427, end: 20130427
  2. ATOVAQUONE [Concomitant]
  3. METOPROLOL [Concomitant]
  4. ACYCLOVIR [Concomitant]
  5. AMLODIPINE [Concomitant]
  6. ASPIRIN [Concomitant]
  7. FINASTERIDE [Concomitant]
  8. POTASSIUM CHLORIDE [Concomitant]
  9. CLOBETASOL GEL [Concomitant]
  10. CYANOCOBALAMIN [Concomitant]
  11. SIMVASTATIN [Concomitant]
  12. TRIAMCINOLONE CREAM [Concomitant]
  13. CYCLOBENZAPRINE [Concomitant]
  14. DOCUSATE [Concomitant]
  15. SENNA [Concomitant]
  16. ACETAMINOPHEN-CODEINE [Concomitant]

REACTIONS (7)
  - Drug dispensing error [None]
  - Hypertension [None]
  - Tachycardia [None]
  - Tachypnoea [None]
  - Anaphylactic reaction [None]
  - Hypoxia [None]
  - Incorrect dose administered [None]
